FAERS Safety Report 20297516 (Version 2)
Quarter: 2025Q3

REPORT INFORMATION
  Report Type: Spontaneous
  Country: US (occurrence: US)
  Receive Date: 20220105
  Receipt Date: 20250704
  Transmission Date: 20251021
  Serious: Yes (Other)
  Sender: GLENMARK
  Company Number: US-GLENMARK PHARMACEUTICALS-2021GMK053106

PATIENT

DRUGS (2)
  1. ESTRADIOL [Suspect]
     Active Substance: ESTRADIOL
     Indication: Product used for unknown indication
     Route: 067
  2. ESTRADIOL [Suspect]
     Active Substance: ESTRADIOL

REACTIONS (5)
  - Vulvovaginal injury [Unknown]
  - Injury associated with device [Unknown]
  - Drug dose omission by device [Unknown]
  - Device material issue [Unknown]
  - Drug delivery system issue [Unknown]
